FAERS Safety Report 5395215-2 (Version None)
Quarter: 2007Q3

REPORT INFORMATION
  Report Type: 
  Country: None (occurrence: None)
  Receive Date: 20070713
  Receipt Date: 20061107
  Transmission Date: 20080115
  Serious: Yes (Other)
  Sender: FDA-Public Use
  Company Number: US-JNJFOC-20061101696

PATIENT
  Age: 36 Year
  Sex: Female
  Weight: 88.4514 kg

DRUGS (1)
  1. ORTHO EVRA [Suspect]
     Indication: OVARIAN CYST
     Dosage: 1 DOSE(S), 3 IN 4 WEEK, TRANSDERMAL
     Route: 062
     Dates: start: 20060701, end: 20061001

REACTIONS (3)
  - DEPRESSION [None]
  - OEDEMA [None]
  - WEIGHT INCREASED [None]
